FAERS Safety Report 8607742-2 (Version None)
Quarter: 2012Q3

REPORT INFORMATION
  Report Type: 
  Country: None (occurrence: None)
  Receive Date: 20120821
  Receipt Date: 20120813
  Transmission Date: 20120928
  Serious: Yes (Hospitalization, Other)
  Sender: FDA-Public Use
  Company Number: PHHY2012BR071152

PATIENT
  Sex: Female
  Weight: 57 kg

DRUGS (3)
  1. DESERILA [Suspect]
     Indication: NAUSEA
  2. DESERILA [Suspect]
     Indication: MIGRAINE
     Dosage: 1 TABLET, DAILY
     Route: 048
     Dates: start: 20120101, end: 20120812
  3. BUP [Concomitant]
     Indication: ANXIETY
     Dosage: 1 TABLET, DAILY
     Route: 048

REACTIONS (4)
  - MIGRAINE [None]
  - DRUG DEPENDENCE [None]
  - NAUSEA [None]
  - MALAISE [None]
